FAERS Safety Report 10624968 (Version 2)
Quarter: 2015Q1

REPORT INFORMATION
  Report Type: Report from Study
  Country: US (occurrence: US)
  Receive Date: 20141204
  Receipt Date: 20150312
  Transmission Date: 20150720
  Serious: Yes (Hospitalization)
  Sender: FDA-Public Use
  Company Number: US-BIOGENIDEC-2014BI128026

PATIENT
  Sex: Female

DRUGS (1)
  1. TYSABRI [Suspect]
     Active Substance: NATALIZUMAB
     Indication: MULTIPLE SCLEROSIS
     Route: 042
     Dates: start: 20130909

REACTIONS (3)
  - Malaise [Recovered/Resolved]
  - Drug dose omission [Unknown]
  - Genital disorder female [Not Recovered/Not Resolved]

NARRATIVE: CASE EVENT DATE: 2013
